FAERS Safety Report 9861853 (Version 6)
Quarter: 2020Q2

REPORT INFORMATION
  Report Type: Spontaneous
  Country: US (occurrence: US)
  Receive Date: 20140203
  Receipt Date: 20200403
  Transmission Date: 20200714
  Serious: No
  Sender: FDA-Public Use
  Company Number: US-PFIZER INC-2014027810

PATIENT
  Age: 74 Year
  Sex: Female
  Weight: 62.14 kg

DRUGS (5)
  1. VITAMIN D [Concomitant]
     Active Substance: VITAMIN D NOS
     Dosage: UNK
  2. MOTRIN [Concomitant]
     Active Substance: IBUPROFEN
     Dosage: UNK
  3. NEXIUM [Concomitant]
     Active Substance: ESOMEPRAZOLE MAGNESIUM
     Dosage: UNK
  4. PREMARIN [Suspect]
     Active Substance: ESTROGENS, CONJUGATED
     Indication: HORMONE REPLACEMENT THERAPY
     Dosage: 0.625 MG, DAILY
     Dates: start: 1986
  5. PREMARIN [Suspect]
     Active Substance: ESTROGENS, CONJUGATED
     Dosage: 0.625 MG, 1X/DAY
     Route: 048

REACTIONS (9)
  - Depression [Recovered/Resolved]
  - Feeling abnormal [Unknown]
  - Seasonal allergy [Unknown]
  - Fatigue [Recovered/Resolved]
  - Dysphonia [Unknown]
  - Loss of personal independence in daily activities [Recovered/Resolved]
  - Throat clearing [Unknown]
  - Nasopharyngitis [Recovered/Resolved]
  - Insomnia [Not Recovered/Not Resolved]
